FAERS Safety Report 16029530 (Version 1)
Quarter: 2019Q2

REPORT INFORMATION
  Report Type: Spontaneous
  Country: US (occurrence: US)
  Receive Date: 20190303
  Receipt Date: 20190303
  Transmission Date: 20190711
  Serious: Yes (Disabling)
  Sender: FDA-Public Use
  Company Number: None

PATIENT
  Age: 79 Year
  Sex: Male
  Weight: 83.25 kg

DRUGS (7)
  1. TERAZOSIN [Concomitant]
     Active Substance: TERAZOSIN\TERAZOSIN HYDROCHLORIDE
  2. LORATADINE. [Concomitant]
     Active Substance: LORATADINE
  3. SYMBICORT [Suspect]
     Active Substance: BUDESONIDE\FORMOTEROL FUMARATE DIHYDRATE
     Indication: CHRONIC OBSTRUCTIVE PULMONARY DISEASE
     Dosage: ?          QUANTITY:2 INHALATION(S);?
     Route: 055
  4. LISINOPRIL. [Concomitant]
     Active Substance: LISINOPRIL
  5. MELOXICAM. [Concomitant]
     Active Substance: MELOXICAM
  6. ASPIRIN. [Concomitant]
     Active Substance: ASPIRIN
  7. MULTI-VITAMIN FOR SENIOR MALE [Concomitant]

REACTIONS (7)
  - Arthralgia [None]
  - Osteoarthritis [None]
  - Extra dose administered [None]
  - Memory impairment [None]
  - Pain in extremity [None]
  - Inappropriate schedule of product administration [None]
  - Bursitis [None]

NARRATIVE: CASE EVENT DATE: 20181201
